FAERS Safety Report 8592009-1 (Version None)
Quarter: 2012Q3

REPORT INFORMATION
  Report Type: 
  Country: None (occurrence: None)
  Receive Date: 20120814
  Receipt Date: 20120808
  Transmission Date: 20120928
  Serious: Yes (Hospitalization)
  Sender: FDA-Public Use
  Company Number: FR-PFIZER INC-2012194045

PATIENT
  Age: 50 Year
  Sex: Male

DRUGS (4)
  1. RIFABUTIN [Suspect]
     Indication: HELICOBACTER GASTRITIS
     Dosage: 150 MG, 2X/DAY
     Route: 048
     Dates: start: 20120629, end: 20120709
  2. BISMUTH [Suspect]
     Indication: HELICOBACTER GASTRITIS
     Dosage: 150 MG, 4X/DAY
     Route: 048
     Dates: start: 20120629, end: 20120709
  3. ESOMEPRAZOLE MAGNESIUM [Suspect]
     Indication: HELICOBACTER GASTRITIS
     Dosage: 40 MG, 2X/DAY
     Route: 048
     Dates: start: 20120629, end: 20120709
  4. LEVOFLOXACIN [Suspect]
     Indication: HELICOBACTER GASTRITIS
     Dosage: 500 MG, 2X/DAY
     Route: 048
     Dates: start: 20120629, end: 20120709

REACTIONS (1)
  - TENDON RUPTURE [None]
